FAERS Safety Report 16456027 (Version 1)
Quarter: 2019Q2

REPORT INFORMATION
  Report Type: Spontaneous
  Country: US (occurrence: US)
  Receive Date: 20190620
  Receipt Date: 20190620
  Transmission Date: 20190711
  Serious: No
  Sender: FDA-Public Use
  Company Number: US-INCYTE CORPORATION-2019IN005914

PATIENT

DRUGS (1)
  1. JAKAFI [Suspect]
     Active Substance: RUXOLITINIB
     Dosage: 10 MILLIGRAM (ONE-HALF 20 MG TABLET), BID
     Route: 048
     Dates: start: 20140807

REACTIONS (2)
  - Incorrect dose administered [Unknown]
  - Skin irritation [Unknown]

NARRATIVE: CASE EVENT DATE: 20140807
